FAERS Safety Report 5463194-5 (Version None)
Quarter: 2007Q3

REPORT INFORMATION
  Report Type: 
  Country: None (occurrence: None)
  Receive Date: 20070920
  Receipt Date: 20070918
  Transmission Date: 20080115
  Serious: Yes (Other)
  Sender: FDA-Public Use
  Company Number: A0682826A

PATIENT
  Sex: Male

DRUGS (1)
  1. AROPAX [Suspect]
     Indication: DEPRESSION
     Dosage: 39MG PER DAY
     Route: 048
     Dates: start: 20070201

REACTIONS (2)
  - LOWER LIMB FRACTURE [None]
  - UPPER LIMB FRACTURE [None]
